FAERS Safety Report 6672661-8 (Version None)
Quarter: 2010Q2

REPORT INFORMATION
  Report Type: 
  Country: None (occurrence: None)
  Receive Date: 20100408
  Receipt Date: 20100329
  Transmission Date: 20101027
  Serious: Yes (Hospitalization, Other)
  Sender: FDA-Public Use
  Company Number: US-AMGEN-QUU402843

PATIENT
  Sex: Female

DRUGS (4)
  1. ENBREL [Suspect]
     Indication: RHEUMATOID ARTHRITIS
     Route: 058
     Dates: start: 20000223
  2. METHOTREXATE [Concomitant]
  3. HUMIRA [Concomitant]
     Dates: start: 20050101, end: 20050101
  4. ORENCIA [Concomitant]

REACTIONS (7)
  - ASTHMA [None]
  - DEPRESSED MOOD [None]
  - GENITAL INFECTION BACTERIAL [None]
  - INJECTION SITE PAIN [None]
  - PAIN [None]
  - STAPHYLOCOCCAL INFECTION [None]
  - THERAPEUTIC RESPONSE DECREASED [None]
